FAERS Safety Report 16445295 (Version 2)
Quarter: 2019Q2

REPORT INFORMATION
  Report Type: Spontaneous
  Country: US (occurrence: US)
  Receive Date: 20190618
  Receipt Date: 20190624
  Transmission Date: 20190711
  Serious: No
  Sender: FDA-Public Use
  Company Number: US-GLAXOSMITHKLINE-US2019AMR105810

PATIENT
  Sex: Female

DRUGS (1)
  1. BENLYSTA [Suspect]
     Active Substance: BELIMUMAB
     Indication: SYSTEMIC LUPUS ERYTHEMATOSUS
     Dosage: UNK UNK, WE
     Route: 065
     Dates: start: 20190521

REACTIONS (10)
  - Decreased appetite [Recovering/Resolving]
  - Dry eye [Recovering/Resolving]
  - Pain in extremity [Recovering/Resolving]
  - Rash [Recovering/Resolving]
  - Chest pain [Recovering/Resolving]
  - Ill-defined disorder [Recovering/Resolving]
  - Therapy cessation [Unknown]
  - Fatigue [Recovering/Resolving]
  - Vertigo [Recovering/Resolving]
  - Limb discomfort [Recovering/Resolving]
